FAERS Safety Report 7265711-1 (Version None)
Quarter: 2011Q1

REPORT INFORMATION
  Report Type: 
  Country: None (occurrence: None)
  Receive Date: 20110131
  Receipt Date: 20110125
  Transmission Date: 20110831
  Serious: Yes (Death)
  Sender: FDA-Public Use
  Company Number: TW-MERCK-1101USA03076

PATIENT
  Age: 81 Year
  Sex: Male

DRUGS (1)
  1. FOSAMAX PLUS D [Suspect]
     Indication: OSTEOPOROSIS
     Route: 048
     Dates: start: 20091027, end: 20101202

REACTIONS (4)
  - HEPATIC NEOPLASM MALIGNANT [None]
  - HEPATIC CIRRHOSIS [None]
  - PNEUMONIA [None]
  - RESPIRATORY FAILURE [None]
